FAERS Safety Report 7740934-3 (Version None)
Quarter: 2011Q3

REPORT INFORMATION
  Report Type: 
  Country: None (occurrence: None)
  Receive Date: 20110909
  Receipt Date: 20110826
  Transmission Date: 20111222
  Serious: Yes (Other)
  Sender: FDA-Public Use
  Company Number: PHHY2011BR51096

PATIENT
  Sex: Female

DRUGS (5)
  1. EXFORGE HCT [Suspect]
     Indication: HYPERTENSION
     Dosage: 1 DF, DAILY
     Route: 048
  2. REPOFLOR [Concomitant]
     Indication: DIARRHOEA
     Dates: start: 20110301
  3. MORPHINE SULFATE [Concomitant]
     Indication: BACK PAIN
     Dosage: 2 DF, DAILY
     Route: 048
     Dates: start: 20101201
  4. VONAU [Concomitant]
     Indication: VOMITING
     Dosage: UNK
     Dates: start: 20110301
  5. CARBAMAZEPINE [Concomitant]
     Indication: ANXIETY
     Dosage: 1 DF, DAILY

REACTIONS (5)
  - MAMMOGRAM ABNORMAL [None]
  - BREAST MASS [None]
  - SPINAL COLUMN INJURY [None]
  - BACK PAIN [None]
  - BREAST CANCER [None]
